FAERS Safety Report 12145821 (Version 2)
Quarter: 2016Q2

REPORT INFORMATION
  Report Type: Spontaneous
  Country: US (occurrence: US)
  Receive Date: 20160304
  Receipt Date: 20160516
  Transmission Date: 20160815
  Serious: No
  Sender: FDA-Public Use
  Company Number: US-ASTRAZENECA-2016SE21977

PATIENT
  Age: 76 Year
  Sex: Male
  Weight: 82 kg

DRUGS (6)
  1. METOPROLOL SUCCINATE. [Concomitant]
     Active Substance: METOPROLOL SUCCINATE
     Indication: BLOOD PRESSURE ABNORMAL
     Route: 048
  2. ATORVASTATIN [Concomitant]
     Active Substance: ATORVASTATIN
     Indication: BLOOD CHOLESTEROL ABNORMAL
     Route: 048
  3. TELMISARTAN/HCTZ [Concomitant]
     Active Substance: HYDROCHLOROTHIAZIDE\TELMISARTAN
     Indication: BLOOD PRESSURE ABNORMAL
     Dosage: [TELMISARTAN 80MG]/[HYDROCHLOROTHIAZIDE 12.5MG], 1X/DAY
     Route: 048
  4. ALLOPURINOL. [Concomitant]
     Active Substance: ALLOPURINOL
     Indication: ARTHRITIS
     Route: 048
  5. NEXIUM 24HR [Suspect]
     Active Substance: ESOMEPRAZOLE MAGNESIUM
     Indication: GASTROOESOPHAGEAL REFLUX DISEASE
     Dosage: 1 PILL IN THE MORNING WITH WATER ONCE A DAY ONE WEEK ON, ONE WEEK OFF
     Route: 048
     Dates: start: 2016
  6. COLCHICINE. [Concomitant]
     Active Substance: COLCHICINE
     Indication: ARTHRITIS
     Route: 048

REACTIONS (5)
  - Peripheral swelling [Not Recovered/Not Resolved]
  - Pruritus [Unknown]
  - Arthralgia [Not Recovered/Not Resolved]
  - Off label use [Not Recovered/Not Resolved]
  - Pain in extremity [Not Recovered/Not Resolved]

NARRATIVE: CASE EVENT DATE: 201601
